FAERS Safety Report 24700515 (Version 2)
Quarter: 2024Q4

REPORT INFORMATION
  Report Type: Spontaneous
  Country: CA (occurrence: CA)
  Receive Date: 20241205
  Receipt Date: 20241213
  Transmission Date: 20250114
  Serious: Yes (Death)
  Sender: ROCHE
  Company Number: CA-002147023-NVSC2024CA231211

PATIENT
  Age: 86 Year
  Sex: Male

DRUGS (1)
  1. LUCENTIS [Suspect]
     Active Substance: RANIBIZUMAB
     Indication: Neovascular age-related macular degeneration
     Route: 042
     Dates: start: 20141113, end: 20240806

REACTIONS (1)
  - Death [Fatal]

NARRATIVE: CASE EVENT DATE: 20240924
